FAERS Safety Report 4578656-2 (Version None)
Quarter: 2005Q1

REPORT INFORMATION
  Report Type: 
  Country: None (occurrence: None)
  Receive Date: 20050207
  Receipt Date: 20050207
  Transmission Date: 20050727
  Serious: No
  Sender: FDA-Public Use
  Company Number: None

PATIENT
  Age: 77 Year
  Sex: Male
  Weight: 70.3075 kg

DRUGS (7)
  1. TRAMADOL   50 MG [Suspect]
     Indication: CLOSTRIDIAL INFECTION
     Dosage: 50 MG  TID ORAL
     Route: 048
     Dates: start: 20050201, end: 20050203
  2. TRAMADOL   50 MG [Suspect]
     Indication: MUSCLE SPASMS
     Dosage: 50 MG  TID ORAL
     Route: 048
     Dates: start: 20050201, end: 20050203
  3. METRONIDAZOLE [Concomitant]
  4. VANCOMYCIN [Concomitant]
  5. HYOCYAMINE [Concomitant]
  6. ALBUTEROL [Concomitant]
  7. IPATROPIUM BROMIDE NEBULIZER [Concomitant]

REACTIONS (2)
  - AGEUSIA [None]
  - ORAL INTAKE REDUCED [None]
